FAERS Safety Report 5046285-2 (Version None)
Quarter: 2006Q2

REPORT INFORMATION
  Report Type: 
  Country: None (occurrence: None)
  Receive Date: 20060629
  Receipt Date: 20060616
  Transmission Date: 20061013
  Serious: Yes (Death, Hospitalization, Other)
  Sender: FDA-Public Use
  Company Number: 2006000017

PATIENT
  Age: 65 Year
  Sex: Male
  Weight: 97.5234 kg

DRUGS (14)
  1. TIKOSYN [Suspect]
     Indication: ATRIAL FIBRILLATION
     Dosage: 0.25 MG (0.125 MG, BID INTERVAL:  EVERY DAY), ORAL
     Route: 048
     Dates: start: 20050501, end: 20060301
  2. MUCINEX [Suspect]
     Indication: PRODUCTIVE COUGH
     Dates: start: 20050101, end: 20051201
  3. ATENOLOL [Concomitant]
  4. NIASPAN [Concomitant]
  5. LESCOL [Concomitant]
  6. PLAVIX [Concomitant]
  7. ASPIRIN [Concomitant]
  8. VITAMIN B6 (VITAMIN B6) [Concomitant]
  9. VITAMIN B12 [Concomitant]
  10. COZAAR [Concomitant]
  11. VITAMIN E [Concomitant]
  12. MULTIVITAMIN [Concomitant]
  13. FOLIC ACID [Concomitant]
  14. VITAMIN C (VITAMIN C) [Concomitant]

REACTIONS (8)
  - BLOOD MAGNESIUM ABNORMAL [None]
  - BLOOD POTASSIUM DECREASED [None]
  - BUNDLE BRANCH BLOCK RIGHT [None]
  - ELECTROLYTE IMBALANCE [None]
  - ISCHAEMIC CARDIOMYOPATHY [None]
  - PRODUCTIVE COUGH [None]
  - THERAPY NON-RESPONDER [None]
  - VENTRICULAR TACHYCARDIA [None]
